FAERS Safety Report 4265031-3 (Version None)
Quarter: 2004Q1

REPORT INFORMATION
  Report Type: 
  Country: None (occurrence: None)
  Receive Date: 20040105
  Receipt Date: 20031222
  Transmission Date: 20041129
  Serious: Yes (Hospitalization)
  Sender: FDA-Public Use
  Company Number: 2003-111292-NL

PATIENT
  Age: 84 Year
  Sex: Female

DRUGS (6)
  1. DANAPAROID SODIUM [Suspect]
     Indication: DISSEMINATED INTRAVASCULAR COAGULATION
     Dosage: 1250 ANTI_XA INTRAVENOUS (NOS)
     Route: 042
     Dates: start: 20030716, end: 20030717
  2. GABEXATE MESILATE [Concomitant]
  3. FAMOTIDINE [Concomitant]
  4. IMMUNOGLOBULIN HUMAN NORMAL [Concomitant]
  5. FLOMOXEF SODIUM [Concomitant]
  6. METHYLPREDNISOLONE SODIUM SUCCINATE [Concomitant]

REACTIONS (4)
  - ANASTOMOTIC HAEMORRHAGE [None]
  - POST PROCEDURAL COMPLICATION [None]
  - RECTAL HAEMORRHAGE [None]
  - SHOCK [None]
